FAERS Safety Report 16043054 (Version 3)
Quarter: 2020Q1

REPORT INFORMATION
  Report Type: Report from Study
  Country: UG (occurrence: UG)
  Receive Date: 20190306
  Receipt Date: 20200311
  Transmission Date: 20200409
  Serious: Yes (Life-Threatening, Other)
  Sender: FDA-Public Use
  Company Number: UG-VIIV HEALTHCARE LIMITED-UG2019GSK039654

PATIENT
  Age: 29 Year
  Sex: Female

DRUGS (16)
  1. 3TC [Concomitant]
     Active Substance: LAMIVUDINE
     Dosage: UNK
     Dates: start: 20180418
  2. BENZATHINE [Concomitant]
     Dosage: 2.4 MIU
     Dates: start: 20180418, end: 20180502
  3. PENICILLIN [Concomitant]
     Active Substance: PENICILLIN
  4. EFAVIRENZ. [Concomitant]
     Active Substance: EFAVIRENZ
     Indication: HIV INFECTION
     Dosage: 1200 MG, UNK
     Dates: start: 20180418
  5. TENOFOVIR DISOPROXIL FUMARATE. [Concomitant]
     Active Substance: TENOFOVIR DISOPROXIL FUMARATE
     Indication: HIV INFECTION
     Dosage: 300 MG, QD
     Dates: start: 20180328, end: 20180403
  6. AMOXICILLIN. [Concomitant]
     Active Substance: AMOXICILLIN
     Dosage: 1500 MG, QD
     Dates: start: 20180515, end: 20180520
  7. FERROUS SULPHATE AND FOLIC ACID [Concomitant]
     Active Substance: FERROUS SULFATE\FOLIC ACID
     Dosage: 1 DF
     Dates: start: 20180328, end: 201810
  8. DOLUTEGRAVIR [Suspect]
     Active Substance: DOLUTEGRAVIR
     Indication: HIV INFECTION
     Dosage: 50 MG, QD
     Dates: start: 20180328, end: 20180403
  9. 3TC [Concomitant]
     Active Substance: LAMIVUDINE
     Indication: HIV INFECTION
     Dosage: 300 MG
     Dates: start: 20180328, end: 20180403
  10. METRONIDAZOLE. [Concomitant]
     Active Substance: METRONIDAZOLE
     Dosage: 1200 MG, QD
     Dates: start: 20180515, end: 20180520
  11. PARACETAMOL [Concomitant]
     Active Substance: ACETAMINOPHEN
     Dosage: 3 G, QD
     Dates: start: 20180621, end: 20180624
  12. ALBENDAZOLE. [Concomitant]
     Active Substance: ALBENDAZOLE
     Dosage: 400 MG
     Dates: start: 20180418, end: 20180418
  13. CEFIXIME. [Concomitant]
     Active Substance: CEFIXIME
     Dosage: 400 MG
     Dates: start: 20190321
  14. TENOFOVIR DISOPROXIL FUMARATE. [Concomitant]
     Active Substance: TENOFOVIR DISOPROXIL FUMARATE
     Dosage: UNK
     Dates: start: 20180418
  15. COTRIMOXAZOLE [Concomitant]
     Active Substance: SULFAMETHOXAZOLE\TRIMETHOPRIM
     Dosage: 960 MG, UNK
     Dates: start: 20180328
  16. PARACETAMOL [Concomitant]
     Active Substance: ACETAMINOPHEN
     Dosage: 3 G, QD
     Dates: start: 20180515, end: 201805

REACTIONS (1)
  - Suicidal ideation [Not Recovered/Not Resolved]

NARRATIVE: CASE EVENT DATE: 20180806
